FAERS Safety Report 12255557 (Version 1)
Quarter: 2016Q2

REPORT INFORMATION
  Report Type: Spontaneous
  Country: GB (occurrence: GB)
  Receive Date: 20160412
  Receipt Date: 20160412
  Transmission Date: 20160815
  Serious: Yes (Other)
  Sender: FDA-Public Use
  Company Number: GB-ACCORD-039525

PATIENT
  Age: 58 Year
  Sex: Female

DRUGS (2)
  1. TRAMADOL/TRAMADOL HYDROCHLORIDE [Suspect]
     Active Substance: TRAMADOL HYDROCHLORIDE
     Indication: PAIN
     Dosage: DOSE: 50 MG ONCE DAILY THEN TWICE DAILY AND BACK TO ONCE DAY IN EVE OF 18-FEB-2016.??STRENGTH. 50
     Route: 048
     Dates: end: 20160308
  2. PARACETAMOL [Concomitant]
     Active Substance: ACETAMINOPHEN
     Indication: PRODUCT USED FOR UNKNOWN INDICATION
     Route: 065

REACTIONS (9)
  - Drug withdrawal syndrome [Unknown]
  - Aphasia [Unknown]
  - Headache [Unknown]
  - Feeling hot [Unknown]
  - Depression [Unknown]
  - Movement disorder [Unknown]
  - Nausea [Unknown]
  - Depressed level of consciousness [Unknown]
  - Insomnia [Unknown]

NARRATIVE: CASE EVENT DATE: 20160218
